FAERS Safety Report 9382234 (Version 1)
Quarter: 2013Q3

REPORT INFORMATION
  Report Type: Spontaneous
  Country: US (occurrence: US)
  Receive Date: 20130703
  Receipt Date: 20130703
  Transmission Date: 20140515
  Serious: No
  Sender: FDA-Public Use
  Company Number: US-PFIZER INC-2013196160

PATIENT
  Age: 70 Year
  Sex: Female

DRUGS (12)
  1. XELJANZ [Suspect]
     Dosage: 5 MG, 2X/DAY
     Route: 048
  2. FOLIC ACID [Concomitant]
     Dosage: UNK
  3. CALCIUM [Concomitant]
     Dosage: 500 TAB
  4. METHOTREXATE [Concomitant]
     Dosage: 2.5 MG, UNK
  5. OMEGA 3 [Concomitant]
     Dosage: 1000 MG, UNK
  6. NEXIUM [Concomitant]
     Dosage: 20 MG, UNK
  7. MELOXICAM [Concomitant]
     Dosage: 7.5 MG, UNK
  8. ZANTAC [Concomitant]
     Dosage: 75 TAB
  9. ZYRTEC [Concomitant]
     Dosage: 5 MG, UNK
  10. ATORVASTATIN [Concomitant]
     Dosage: 20 MG, UNK
  11. VITAMIN D [Concomitant]
     Dosage: 2000 IU, UNK
  12. PREDNISONE [Concomitant]
     Dosage: 2.5 MG, UNK

REACTIONS (1)
  - Upper respiratory tract infection [Unknown]
